FAERS Safety Report 8287332-4 (Version None)
Quarter: 2012Q2

REPORT INFORMATION
  Report Type: 
  Country: None (occurrence: None)
  Receive Date: 20120416
  Receipt Date: 20120413
  Transmission Date: 20120825
  Serious: Yes (Death, Life-Threatening, Hospitalization)
  Sender: FDA-Public Use
  Company Number: JP-TEVA-325189USA

PATIENT
  Sex: Male
  Weight: 55 kg

DRUGS (7)
  1. BACTRIM [Concomitant]
     Indication: PROPHYLAXIS
     Dates: start: 20110823
  2. PALONOSETRON HYDROCHLORIDE [Concomitant]
  3. LOXOPROFEN SODIUM [Concomitant]
     Dates: start: 20110823, end: 20111220
  4. TREANDA [Suspect]
     Indication: B-CELL LYMPHOMA
     Route: 042
     Dates: start: 20110823
  5. RITUXIMAB [Concomitant]
     Indication: B-CELL LYMPHOMA
     Dosage: 600 MILLIGRAM;
     Dates: start: 20110823, end: 20111220
  6. VALACYCLOVIR HYDROCHLORIDE [Concomitant]
     Indication: PROPHYLAXIS
     Dates: start: 20110823
  7. BETAMETHASONE W/DEXCHLORPHENIRAMINE MALEATE [Concomitant]
     Dates: start: 20110823, end: 20111220

REACTIONS (2)
  - APLASTIC ANAEMIA [None]
  - PNEUMONIA [None]
